FAERS Safety Report 4784758-8 (Version None)
Quarter: 2005Q3

REPORT INFORMATION
  Report Type: 
  Country: None (occurrence: None)
  Receive Date: 20050930
  Receipt Date: 20050901
  Transmission Date: 20060218
  Serious: Yes (Hospitalization)
  Sender: FDA-Public Use
  Company Number: ES-BRISTOL-MYERS SQUIBB COMPANY-13099320

PATIENT
  Age: 65 Year
  Sex: Male

DRUGS (5)
  1. ABILIFY [Suspect]
     Indication: SCHIZOPHRENIA
     Route: 048
     Dates: start: 20050601, end: 20050830
  2. CHLORDIAZEPOXIDE [Concomitant]
     Indication: ANXIETY
     Dates: start: 20010101
  3. ADIRO [Concomitant]
     Indication: PROPHYLAXIS
     Dates: start: 20010101
  4. DIAMICRON [Concomitant]
     Indication: DIABETES MELLITUS
     Dates: start: 20010101
  5. RIVASTIGMINE [Concomitant]
     Indication: DEMENTIA
     Dates: start: 20020101, end: 20050820

REACTIONS (1)
  - LACUNAR INFARCTION [None]
